FAERS Safety Report 16606112 (Version 1)
Quarter: 2019Q3

REPORT INFORMATION
  Report Type: Report from Study
  Country: JP (occurrence: JP)
  Receive Date: 20190721
  Receipt Date: 20190721
  Transmission Date: 20191004
  Serious: Yes (Other)
  Sender: FDA-Public Use
  Company Number: JP-BEH-2019104646

PATIENT
  Age: 10 Year
  Sex: Male
  Weight: 24.2 kg

DRUGS (4)
  1. IDELVION [Suspect]
     Active Substance: COAGULATION FACTOR IX RECOMBINANT HUMAN
     Indication: FACTOR IX DEFICIENCY
  2. IDELVION [Suspect]
     Active Substance: COAGULATION FACTOR IX RECOMBINANT HUMAN
     Indication: FACTOR IX DEFICIENCY
  3. IDELVION [Suspect]
     Active Substance: COAGULATION FACTOR IX RECOMBINANT HUMAN
     Indication: PROCOAGULANT THERAPY
     Dosage: 1000IU OR1500IU, ONCE IN A WEEK OR TWO
     Route: 042
     Dates: start: 20170228, end: 20180227
  4. IDELVION [Suspect]
     Active Substance: COAGULATION FACTOR IX RECOMBINANT HUMAN
     Indication: PROCOAGULANT THERAPY
     Dosage: 1000IU OR1500IU, ONCE IN A WEEK OR TWO
     Route: 042
     Dates: start: 20170228, end: 20180227

REACTIONS (2)
  - Haemorrhage [Recovered/Resolved]
  - Product dose omission [Recovered/Resolved]

NARRATIVE: CASE EVENT DATE: 201803
